FAERS Safety Report 15310762 (Version 1)
Quarter: 2018Q3

REPORT INFORMATION
  Report Type: Report from Study
  Country: CN (occurrence: CN)
  Receive Date: 20180823
  Receipt Date: 20180823
  Transmission Date: 20181010
  Serious: Yes (Death)
  Sender: FDA-Public Use
  Company Number: CN-PFIZER INC-2018339290

PATIENT
  Age: 12 Month
  Sex: Male

DRUGS (3)
  1. MEROPENEM. [Suspect]
     Active Substance: MEROPENEM
     Indication: TOXIC SHOCK SYNDROME STREPTOCOCCAL
     Dosage: UNK
  2. AZITHROMYCIN ANHYDROUS. [Suspect]
     Active Substance: AZITHROMYCIN ANHYDROUS
     Indication: TOXIC SHOCK SYNDROME STREPTOCOCCAL
     Dosage: UNK (INFUSION)
     Route: 042
  3. VANCOMYCIN [Suspect]
     Active Substance: VANCOMYCIN
     Indication: TOXIC SHOCK SYNDROME STREPTOCOCCAL
     Dosage: UNK

REACTIONS (1)
  - Drug ineffective [Fatal]
